FAERS Safety Report 5114021-7 (Version None)
Quarter: 2006Q3

REPORT INFORMATION
  Report Type: 
  Country: None (occurrence: None)
  Receive Date: 20060921
  Receipt Date: 20060908
  Transmission Date: 20061208
  Serious: Yes (Other)
  Sender: FDA-Public Use
  Company Number: 229702

PATIENT
  Age: 61 Year
  Sex: Male

DRUGS (4)
  1. RITUXAN [Suspect]
     Indication: MULTIPLE SCLEROSIS
     Dates: start: 20050801, end: 20060301
  2. NOVANTRONE [Suspect]
     Indication: MULTIPLE SCLEROSIS
     Dosage: INTRAVENOUS
     Route: 042
     Dates: start: 20021021, end: 20030901
  3. CELLCEPT [Suspect]
     Indication: DRUG USE FOR UNKNOWN INDICATION
     Dates: start: 20030101
  4. SOLU-MEDROL [Concomitant]

REACTIONS (1)
  - PANCREATIC CARCINOMA [None]
